FAERS Safety Report 15201450 (Version 1)
Quarter: 2018Q3

REPORT INFORMATION
  Report Type: Spontaneous
  Country: US (occurrence: US)
  Receive Date: 20180726
  Receipt Date: 20180726
  Transmission Date: 20181010
  Serious: No
  Sender: FDA-Public Use
  Company Number: US-B.I. PHARMACEUTICALS,INC./RIDGEFIELD-2018-BI-037568

PATIENT
  Age: 71 Year
  Sex: Male

DRUGS (2)
  1. SPIRIVA [Suspect]
     Active Substance: TIOTROPIUM BROMIDE MONOHYDRATE
     Indication: CHRONIC OBSTRUCTIVE PULMONARY DISEASE
     Dosage: STRENGTH: 1.25 MCG; FORM: INHALATION SPRAY? ADMINISTRATION CORRECT? YES ; DOSE NOT CHANGED
     Route: 048
     Dates: start: 20180707
  2. LISINIPRIL [Concomitant]
     Active Substance: LISINOPRIL
     Indication: BLOOD PRESSURE ABNORMAL
     Dosage: 1 TAB DAILY;  FORM STRENGTH: 5MG; FORMULATION: TABLET
     Route: 048
     Dates: start: 2006

REACTIONS (2)
  - Off label use [Unknown]
  - Gastric disorder [Not Recovered/Not Resolved]

NARRATIVE: CASE EVENT DATE: 20180707
